FAERS Safety Report 22105687 (Version 2)
Quarter: 2024Q2

REPORT INFORMATION
  Report Type: Spontaneous
  Country: CA (occurrence: CA)
  Receive Date: 20230317
  Receipt Date: 20240614
  Transmission Date: 20240716
  Serious: No
  Sender: FDA-Public Use
  Company Number: CA-KOREA IPSEN Pharma-2023-00404

PATIENT
  Sex: Female

DRUGS (2)
  1. DYSPORT [Suspect]
     Active Substance: ABOBOTULINUMTOXINA
     Indication: Skin wrinkling
     Dosage: UNKNOWN
     Route: 065
     Dates: start: 202208, end: 202208
  2. DYSPORT [Suspect]
     Active Substance: ABOBOTULINUMTOXINA
     Indication: Skin wrinkling
     Dosage: UNKNOWN
     Route: 065
     Dates: start: 20221220, end: 20221220

REACTIONS (3)
  - Viral infection [Unknown]
  - Injection site swelling [Unknown]
  - Drug ineffective [Unknown]
